FAERS Safety Report 7800545-8 (Version None)
Quarter: 2011Q4

REPORT INFORMATION
  Report Type: 
  Country: None (occurrence: None)
  Receive Date: 20111006
  Receipt Date: 20111003
  Transmission Date: 20120403
  Serious: No
  Sender: FDA-Public Use
  Company Number: US-PFIZER INC-2011103692

PATIENT
  Sex: Female
  Weight: 54.422 kg

DRUGS (4)
  1. FLAGYL [Suspect]
     Dosage: 200 MG, UNK
  2. CLINDAMYCIN HCL [Suspect]
     Indication: BONE GRAFT
  3. CLINDAMYCIN HCL [Suspect]
     Indication: TOOTH INFECTION
  4. CLINDAMYCIN HCL [Suspect]
     Indication: TOOTH EXTRACTION
     Dosage: 150 MG, 4X/DAY
     Route: 048
     Dates: start: 20110401, end: 20110408

REACTIONS (8)
  - DIZZINESS [None]
  - NAUSEA [None]
  - DIARRHOEA [None]
  - FLATULENCE [None]
  - FOOD INTOLERANCE [None]
  - ASTHENIA [None]
  - FATIGUE [None]
  - RASH [None]
